FAERS Safety Report 8681607 (Version 2)
Quarter: 2013Q4

REPORT INFORMATION
  Report Type: Spontaneous
  Country: US (occurrence: US)
  Receive Date: 20120725
  Receipt Date: 20131101
  Transmission Date: 20140711
  Serious: No
  Sender: FDA-Public Use
  Company Number: US-009507513-1207USA008096

PATIENT
  Age: 52 Year
  Sex: Female

DRUGS (5)
  1. VICTRELIS [Suspect]
     Indication: CHRONIC HEPATITIS C
     Dosage: 800 MG, TID
     Route: 048
     Dates: start: 201205
  2. RIBASPHERE [Suspect]
  3. PEGASYS [Suspect]
  4. LORAZEPAM [Concomitant]
  5. ASPIRIN [Concomitant]

REACTIONS (2)
  - Condition aggravated [Not Recovered/Not Resolved]
  - Treatment failure [Unknown]
